FAERS Safety Report 15762669 (Version 1)
Quarter: 2018Q4

REPORT INFORMATION
  Report Type: Spontaneous
  Country: GB (occurrence: GB)
  Receive Date: 20181226
  Receipt Date: 20181226
  Transmission Date: 20190205
  Serious: Yes (Hospitalization, Other)
  Sender: FDA-Public Use
  Company Number: GB-PFIZER INC-2018519773

PATIENT
  Age: 58 Year
  Sex: Male

DRUGS (4)
  1. SUNITINIB MALATE. [Suspect]
     Active Substance: SUNITINIB MALATE
     Dosage: UNK
     Route: 065
     Dates: start: 201410
  2. SANDOSTATIN [Suspect]
     Active Substance: OCTREOTIDE ACETATE
     Indication: PANCREATIC NEUROENDOCRINE TUMOUR METASTATIC
     Dosage: 30 MG, MONTHLY (4 WEEKLY)
     Route: 065
     Dates: start: 201301
  3. SUNITINIB MALATE. [Suspect]
     Active Substance: SUNITINIB MALATE
     Dosage: 25 MG, 1X/DAY
     Route: 065
     Dates: end: 201508
  4. EVEROLIMUS. [Suspect]
     Active Substance: EVEROLIMUS
     Indication: PANCREATIC NEUROENDOCRINE TUMOUR METASTATIC
     Dosage: 10 MG, 1X/DAY
     Route: 065
     Dates: start: 201306

REACTIONS (6)
  - Asthenia [Unknown]
  - Parathyroid hormone-related protein increased [Unknown]
  - Rash [Unknown]
  - Candida infection [Unknown]
  - Neoplasm progression [Unknown]
  - Blood chromogranin A increased [Unknown]
